FAERS Safety Report 10147488 (Version 3)
Quarter: 2014Q2

REPORT INFORMATION
  Report Type: Report from Study
  Country: US (occurrence: US)
  Receive Date: 20140501
  Receipt Date: 20140515
  Transmission Date: 20141212
  Serious: Yes (Hospitalization, Other)
  Sender: FDA-Public Use
  Company Number: US-ABBVIE-14P-163-1229920-00

PATIENT
  Age: 73 Year
  Sex: Male
  Weight: 95.34 kg

DRUGS (8)
  1. ANDROGEL [Suspect]
     Indication: BLOOD TESTOSTERONE DECREASED
     Route: 061
     Dates: start: 2012, end: 201403
  2. METFORMIN [Concomitant]
     Indication: ATRIAL FIBRILLATION
  3. GLIPIZIDE [Concomitant]
     Indication: DIABETES MELLITUS
  4. COZAAR [Concomitant]
     Indication: PRODUCT USED FOR UNKNOWN INDICATION
  5. DILTIAZEM [Concomitant]
     Indication: PRODUCT USED FOR UNKNOWN INDICATION
  6. MULTAX [Concomitant]
     Indication: PRODUCT USED FOR UNKNOWN INDICATION
  7. GABAPENTIN [Concomitant]
     Indication: PRODUCT USED FOR UNKNOWN INDICATION
  8. WARFARIN [Concomitant]
     Indication: PRODUCT USED FOR UNKNOWN INDICATION

REACTIONS (7)
  - Atrial fibrillation [Recovered/Resolved]
  - Musculoskeletal pain [Recovered/Resolved]
  - Atrial fibrillation [Recovered/Resolved]
  - Pollakiuria [Recovering/Resolving]
  - Urinary tract infection [Recovered/Resolved]
  - Drug administered at inappropriate site [Unknown]
  - Osteoarthritis [Recovered/Resolved]
